FAERS Safety Report 21726131 (Version 1)
Quarter: 2022Q4

REPORT INFORMATION
  Report Type: Spontaneous
  Country: US (occurrence: None)
  Receive Date: 20221213
  Receipt Date: 20221213
  Transmission Date: 20230113
  Serious: Yes (Hospitalization)
  Sender: FDA-Public Use
  Company Number: None

PATIENT
  Age: 60 Year
  Sex: Male
  Weight: 72.9 kg

DRUGS (2)
  1. CISPLATIN [Suspect]
     Active Substance: CISPLATIN
     Dates: end: 20221122
  2. GEMCITABINE HYDROCHLORIDE [Suspect]
     Active Substance: GEMCITABINE HYDROCHLORIDE
     Dates: end: 20221122

REACTIONS (6)
  - Renal failure [None]
  - Thrombosis [None]
  - Renal infarct [None]
  - Leukocytosis [None]
  - Acute kidney injury [None]
  - Aortic thrombosis [None]

NARRATIVE: CASE EVENT DATE: 20221127
